FAERS Safety Report 6303229-0 (Version None)
Quarter: 2009Q3

REPORT INFORMATION
  Report Type: 
  Country: None (occurrence: None)
  Receive Date: 20090810
  Receipt Date: 20090330
  Transmission Date: 20100115
  Serious: No
  Sender: FDA-Public Use
  Company Number: A0768217A

PATIENT
  Age: 53 Year
  Sex: Male
  Weight: 108.6 kg

DRUGS (4)
  1. PAXIL [Suspect]
     Indication: DRUG USE FOR UNKNOWN INDICATION
     Dosage: 30MG PER DAY
     Route: 048
     Dates: start: 20000101
  2. TESTOSTERONE [Concomitant]
  3. BLOOD PRESSURE MEDICATION [Concomitant]
  4. ACIPHEX [Concomitant]

REACTIONS (4)
  - DEPRESSION [None]
  - DRUG ADMINISTRATION ERROR [None]
  - IRRITABILITY [None]
  - MOOD ALTERED [None]
